FAERS Safety Report 7416385-8 (Version None)
Quarter: 2011Q2

REPORT INFORMATION
  Report Type: 
  Country: None (occurrence: None)
  Receive Date: 20110414
  Receipt Date: 20110404
  Transmission Date: 20111010
  Serious: Yes (Other)
  Sender: FDA-Public Use
  Company Number: US-GENENTECH-316541

PATIENT

DRUGS (4)
  1. BORTEZOMIB [Suspect]
     Indication: NON-HODGKIN'S LYMPHOMA
     Dosage: UNK
     Route: 065
  2. BORTEZOMIB [Suspect]
     Dosage: 1.6 MG/M2, DAYS1,8,15 + 22
     Route: 065
  3. IBRITUMOMAB TIUXETAN/YTTRIUM-90 [Suspect]
     Indication: NON-HODGKIN'S LYMPHOMA
     Dosage: 0.4 MCI/KG, UNK
     Route: 065
  4. RITUXIMAB [Suspect]
     Indication: NON-HODGKIN'S LYMPHOMA
     Dosage: 250 MG/M2, UNK
     Route: 065

REACTIONS (5)
  - LEUKOPENIA [None]
  - NEUTROPENIA [None]
  - CARDIOTOXICITY [None]
  - THROMBOCYTOPENIA [None]
  - LYMPHOPENIA [None]
